FAERS Safety Report 5277616-6 (Version None)
Quarter: 2007Q1

REPORT INFORMATION
  Report Type: 
  Country: None (occurrence: None)
  Receive Date: 20070327
  Receipt Date: 20070312
  Transmission Date: 20070707
  Serious: Yes (Hospitalization)
  Sender: FDA-Public Use
  Company Number: US-SHR-US-2007-008437

PATIENT
  Age: 46 Year
  Sex: Female

DRUGS (6)
  1. BETASERON [Suspect]
     Indication: RELAPSING-REMITTING MULTIPLE SCLEROSIS
     Route: 058
     Dates: start: 20070301, end: 20070305
  2. CARDIZEM [Concomitant]
     Indication: CARDIAC DISORDER
  3. XANAX [Concomitant]
     Indication: ANXIETY
  4. PROZAC [Concomitant]
  5. REMERON [Concomitant]
     Indication: INSOMNIA
  6. COREG [Concomitant]

REACTIONS (10)
  - ANOREXIA [None]
  - ANXIETY [None]
  - ATRIAL FIBRILLATION [None]
  - DEPRESSION [None]
  - FATIGUE [None]
  - FEAR [None]
  - NASAL CONGESTION [None]
  - NAUSEA [None]
  - RASH [None]
  - VENTRICULAR EXTRASYSTOLES [None]
